FAERS Safety Report 8628562 (Version 3)
Quarter: 2012Q4

REPORT INFORMATION
  Report Type: 
  Country: GB (occurrence: GB)
  Receive Date: 20120621
  Receipt Date: 20120911
  Transmission Date: 20130627
  Serious: Yes (Death, Hospitalization)
  Sender: FDA-Public Use
  Company Number: GB-ROCHE-1079581

PATIENT
  Age: 91 Year
  Sex: Male

DRUGS (4)
  1. LUCENTIS [Suspect]
     Indication: PRODUCT USED FOR UNKNOWN INDICATION
     Route: 050
     Dates: start: 200909, end: 20100727
  2. SALBUTAMOL [Concomitant]
  3. BUMETANIDE [Concomitant]
     Route: 065
     Dates: start: 20100726
  4. QVAR [Concomitant]
     Route: 065
     Dates: start: 20090127

REACTIONS (1)
  - Death [Fatal]
